FAERS Safety Report 15156216 (Version 1)
Quarter: 2018Q3

REPORT INFORMATION
  Report Type: Spontaneous
  Country: DE (occurrence: DE)
  Receive Date: 20180717
  Receipt Date: 20180717
  Transmission Date: 20181010
  Serious: Yes (Congenital Anomaly, Other)
  Sender: FDA-Public Use
  Company Number: DE-SAKK-2018SA184228AA

PATIENT

DRUGS (17)
  1. LORAZEPAM. [Suspect]
     Active Substance: LORAZEPAM
     Route: 064
  2. FOSFOMYCIN SALT NOT SPECIFIED [Suspect]
     Active Substance: FOSFOMYCIN
     Route: 064
  3. TACROLIMUS. [Suspect]
     Active Substance: TACROLIMUS
     Route: 064
  4. ACEBUTOLOL HYDROCHLORIDE. [Suspect]
     Active Substance: ACEBUTOLOL HYDROCHLORIDE
     Route: 064
  5. PREDNISOLONE. [Suspect]
     Active Substance: PREDNISOLONE
     Route: 064
  6. METHYLDOPA. [Suspect]
     Active Substance: METHYLDOPA
     Route: 064
  7. VALACICLOVIR [Suspect]
     Active Substance: VALACYCLOVIR HYDROCHLORIDE
     Route: 064
  8. COLCHICINE. [Suspect]
     Active Substance: COLCHICINE
     Route: 064
  9. URSODEOXYCHOLIC ACID [Suspect]
     Active Substance: URSODIOL
     Route: 064
  10. CYCLOSPORINE. [Suspect]
     Active Substance: CYCLOSPORINE
     Route: 064
  11. PREDNISONE. [Suspect]
     Active Substance: PREDNISONE
     Route: 064
  12. AZATHIOPRINE. [Suspect]
     Active Substance: AZATHIOPRINE
     Route: 064
  13. ABATACEPT [Suspect]
     Active Substance: ABATACEPT
     Route: 064
  14. MYCOPHENOLATE MOFETIL. [Suspect]
     Active Substance: MYCOPHENOLATE MOFETIL
     Route: 064
  15. NAPROXEN. [Suspect]
     Active Substance: NAPROXEN
     Route: 064
  16. ZOLPIDEM TARTRATE. [Suspect]
     Active Substance: ZOLPIDEM TARTRATE
  17. ESCITALOPRAM OXALATE. [Suspect]
     Active Substance: ESCITALOPRAM OXALATE
     Route: 064

REACTIONS (16)
  - Clinodactyly [Unknown]
  - Meningocele [Unknown]
  - Foetal exposure during pregnancy [Unknown]
  - Microtia [Unknown]
  - Congenital central nervous system anomaly [Unknown]
  - Dysplasia [Unknown]
  - Premature baby [Unknown]
  - Oesophageal atresia [Unknown]
  - Camptodactyly congenital [Unknown]
  - Congenital arterial malformation [Unknown]
  - External auditory canal atresia [Unknown]
  - Hydronephrosis [Unknown]
  - Atrial septal defect [Unknown]
  - Congenital renal cyst [Unknown]
  - Foetal malformation [Unknown]
  - Autism spectrum disorder [Unknown]
